FAERS Safety Report 16635273 (Version 1)
Quarter: 2019Q3

REPORT INFORMATION
  Report Type: Spontaneous
  Country: CH (occurrence: CH)
  Receive Date: 20190726
  Receipt Date: 20190726
  Transmission Date: 20191004
  Serious: Yes (Other)
  Sender: FDA-Public Use
  Company Number: CH-ROCHE-2363180

PATIENT
  Sex: Male

DRUGS (13)
  1. LUCENTIS [Suspect]
     Active Substance: RANIBIZUMAB
     Dosage: UNK UKN, UNK (IN RIGHT EYE)
     Route: 065
     Dates: start: 20170127
  2. LUCENTIS [Suspect]
     Active Substance: RANIBIZUMAB
     Dosage: UNK UKN, UNK (IN RIGHT EYE)
     Route: 065
     Dates: start: 20170303
  3. LUCENTIS [Suspect]
     Active Substance: RANIBIZUMAB
     Dosage: UNK UKN, UNK (IN RIGHT EYE)
     Route: 065
     Dates: start: 20180115
  4. LUCENTIS [Suspect]
     Active Substance: RANIBIZUMAB
     Dosage: UNK UKN, UNK (IN LEFT EYE)
     Route: 065
     Dates: start: 20180122
  5. LUCENTIS [Suspect]
     Active Substance: RANIBIZUMAB
     Dosage: UNK UKN, UNK (IN LEFT EYE)
     Route: 065
     Dates: start: 20171215
  6. LUCENTIS [Suspect]
     Active Substance: RANIBIZUMAB
     Dosage: UNK UKN, UNK (IN LEFT EYE)
     Route: 065
     Dates: start: 20170203
  7. LUCENTIS [Suspect]
     Active Substance: RANIBIZUMAB
     Dosage: UNK UKN, UNK (IN LEFT EYE)
     Route: 065
     Dates: start: 20170317
  8. LUCENTIS [Suspect]
     Active Substance: RANIBIZUMAB
     Dosage: UNK UKN, UNK (IN RIGHT EYE)
     Route: 065
     Dates: start: 20171211
  9. LUCENTIS [Suspect]
     Active Substance: RANIBIZUMAB
     Dosage: UNK UKN, UNK (IN LEFT EYE)
     Route: 065
     Dates: start: 20180713, end: 20180713
  10. LUCENTIS [Suspect]
     Active Substance: RANIBIZUMAB
     Indication: VISUAL IMPAIRMENT
     Dosage: UNK UKN, UNK (IN RIGHT EYE)
     Route: 065
     Dates: start: 20161219
  11. LUCENTIS [Suspect]
     Active Substance: RANIBIZUMAB
     Dosage: UNK UKN, UNK (IN LEFT EYE)
     Route: 065
     Dates: start: 20170925
  12. LUCENTIS [Suspect]
     Active Substance: RANIBIZUMAB
     Dosage: UNK UKN, UNK (IN LEFT EYE)
     Route: 065
     Dates: start: 20161222
  13. LUCENTIS [Suspect]
     Active Substance: RANIBIZUMAB
     Dosage: UNK UKN, UNK (IN LEFT EYE)
     Route: 065
     Dates: start: 20170720

REACTIONS (1)
  - Vitreous detachment [Not Recovered/Not Resolved]

NARRATIVE: CASE EVENT DATE: 20190416
